FAERS Safety Report 9375638 (Version 1)
Quarter: 2013Q2

REPORT INFORMATION
  Report Type: Spontaneous
  Country: US (occurrence: US)
  Receive Date: 20130628
  Receipt Date: 20130628
  Transmission Date: 20140414
  Serious: Yes (Other)
  Sender: FDA-Public Use
  Company Number: US-MYLANLABS-2013S1013576

PATIENT
  Age: 54 Year
  Sex: Male

DRUGS (2)
  1. VALSARTAN AND HYDROCHLOROTHIAZIDE TABLETS [Suspect]
     Indication: BLOOD PRESSURE INCREASED
  2. CRESTOR [Concomitant]
     Indication: BLOOD CHOLESTEROL

REACTIONS (5)
  - Blindness transient [Recovered/Resolved]
  - Drug ineffective [Not Recovered/Not Resolved]
  - Blood pressure increased [Not Recovered/Not Resolved]
  - Flushing [Not Recovered/Not Resolved]
  - Foreign body sensation in eyes [Recovered/Resolved]
